FAERS Safety Report 9841061 (Version 2)
Quarter: 2014Q1

REPORT INFORMATION
  Report Type: Report from Study
  Country: US (occurrence: US)
  Receive Date: 20140124
  Receipt Date: 20140128
  Transmission Date: 20141002
  Serious: Yes (Death, Hospitalization)
  Sender: FDA-Public Use
  Company Number: US-ASTELLAS-2014US000698

PATIENT
  Sex: Female

DRUGS (2)
  1. ERLOTINIB TABLET [Suspect]
     Indication: LUNG NEOPLASM MALIGNANT
     Dosage: 100 MG, UID/QD
     Route: 065
     Dates: start: 201311
  2. ERLOTINIB TABLET [Suspect]
     Dosage: 100 MG, EVERY WEEK
     Route: 065

REACTIONS (5)
  - Incorrect dose administered [Unknown]
  - Dehydration [Unknown]
  - Large intestinal obstruction [Fatal]
  - Metastases to peritoneum [Fatal]
  - Diarrhoea [Unknown]
